FAERS Safety Report 14563063 (Version 1)
Quarter: 2018Q1

REPORT INFORMATION
  Report Type: Spontaneous
  Country: US (occurrence: US)
  Receive Date: 20180221
  Receipt Date: 20180221
  Transmission Date: 20180509
  Serious: Yes (Hospitalization)
  Sender: FDA-Public Use
  Company Number: None

PATIENT
  Age: 84 Year
  Sex: Male

DRUGS (2)
  1. NIACIN (SLO-NIACIN) [Suspect]
     Active Substance: NIACIN
     Indication: ATRIAL FIBRILLATION
     Route: 048
     Dates: start: 20171128, end: 20171229
  2. NIACIN (SLO-NIACIN) [Suspect]
     Active Substance: NIACIN
     Indication: MITRAL VALVE REPLACEMENT
     Route: 048
     Dates: start: 20171128, end: 20171229

REACTIONS (1)
  - Palpitations [None]

NARRATIVE: CASE EVENT DATE: 20171229
